FAERS Safety Report 8233873-5 (Version None)
Quarter: 2012Q1

REPORT INFORMATION
  Report Type: 
  Country: None (occurrence: None)
  Receive Date: 20120326
  Receipt Date: 20120319
  Transmission Date: 20120608
  Serious: Yes (Death, Hospitalization)
  Sender: FDA-Public Use
  Company Number: CH-AMGEN-CHESP2012005989

PATIENT
  Age: 76 Year
  Sex: Male
  Weight: 80 kg

DRUGS (3)
  1. PROLIA [Suspect]
     Indication: OSTEOPOROSIS POSTMENOPAUSAL
  2. PROLIA [Suspect]
     Indication: HYPERCALCAEMIA
     Dosage: 60 MG, UNK
     Route: 058
     Dates: start: 20110818, end: 20110818
  3. VITAMIN D [Concomitant]

REACTIONS (4)
  - BALANCE DISORDER [None]
  - OFF LABEL USE [None]
  - GENERAL PHYSICAL HEALTH DETERIORATION [None]
  - DEATH [None]
